FAERS Safety Report 23593447 (Version 2)
Quarter: 2024Q2

REPORT INFORMATION
  Report Type: Spontaneous
  Country: FR (occurrence: FR)
  Receive Date: 20240304
  Receipt Date: 20240419
  Transmission Date: 20240716
  Serious: Yes (Hospitalization)
  Sender: FDA-Public Use
  Company Number: FR-ROCHE-3495823

PATIENT
  Age: 28 Year
  Sex: Male
  Weight: 78 kg

DRUGS (30)
  1. CYCLOPHOSPHAMIDE [Suspect]
     Active Substance: CYCLOPHOSPHAMIDE
     Indication: Diffuse large B-cell lymphoma
     Dosage: ON 18/JAN/2024, HE RECEIVED MOST RECENT DOSE (1480 MG) OF CYCLOPHOSPHAMIDE PRIOR TO AE AND SAE.
     Route: 042
     Dates: start: 20231228
  2. DOXORUBICIN [Suspect]
     Active Substance: DOXORUBICIN
     Indication: Diffuse large B-cell lymphoma
     Dosage: ON 18/JAN/2024, HE RECEIVED MOST RECENT DOSE OF DOXORUBICIN  PRIOR TO AE AND SAE.
     Route: 042
     Dates: start: 20231228
  3. PREDNISONE [Suspect]
     Active Substance: PREDNISONE
     Indication: Diffuse large B-cell lymphoma
     Dosage: ON 18/JAN/2024, HE RECEIVED MOST RECENT DOSE OF PREDNISONE PRIOR TO AE AND SAE.
     Route: 048
     Dates: start: 20231228
  4. FOLIC ACID [Concomitant]
     Active Substance: FOLIC ACID
     Indication: Product used for unknown indication
     Dosage: 5.000MG
     Route: 065
     Dates: start: 20231220
  5. FOLIC ACID [Concomitant]
     Active Substance: FOLIC ACID
     Dosage: 5.000MG
     Route: 065
     Dates: start: 20231220
  6. COTRIMOXAZOLE [Concomitant]
     Active Substance: SULFAMETHOXAZOLE\TRIMETHOPRIM
     Indication: Product used for unknown indication
     Dosage: UNK
     Route: 065
     Dates: start: 20231229
  7. LENOGRASTIM [Concomitant]
     Active Substance: LENOGRASTIM
     Dosage: 34.000IU QD
     Route: 065
     Dates: start: 20240104, end: 20240110
  8. LENOGRASTIM [Concomitant]
     Active Substance: LENOGRASTIM
     Indication: Product used for unknown indication
     Dosage: 34.000DF QD
     Route: 065
     Dates: start: 20240104, end: 20240110
  9. LANSOPRAZOLE [Concomitant]
     Active Substance: LANSOPRAZOLE
     Indication: Product used for unknown indication
     Dosage: 30.000MG QD
     Route: 065
     Dates: start: 20231219
  10. LANSOPRAZOLE [Concomitant]
     Active Substance: LANSOPRAZOLE
     Dosage: 30.000MG QD
     Route: 065
     Dates: start: 20231219
  11. METOCLOPRAMIDE [Concomitant]
     Active Substance: METOCLOPRAMIDE
     Indication: Product used for unknown indication
     Dosage: 10.000MG QD
     Route: 065
     Dates: start: 20231228, end: 20231228
  12. METOCLOPRAMIDE [Concomitant]
     Active Substance: METOCLOPRAMIDE
     Dosage: 10.000MG QD
     Route: 065
     Dates: start: 20231228, end: 20231228
  13. EPOETIN BETA [Concomitant]
     Active Substance: ERYTHROPOIETIN
     Indication: Product used for unknown indication
     Dosage: 30000 IU
     Route: 065
     Dates: start: 20240119
  14. ONDANSETRON [Concomitant]
     Active Substance: ONDANSETRON
     Indication: Product used for unknown indication
     Dosage: 8.000MG TIW
     Route: 065
     Dates: start: 20231228
  15. ONDANSETRON [Concomitant]
     Active Substance: ONDANSETRON
     Dosage: 8.000MG TIW
     Route: 065
     Dates: start: 20231228
  16. OXYCODONE HYDROCHLORIDE [Concomitant]
     Active Substance: OXYCODONE HYDROCHLORIDE
     Indication: Product used for unknown indication
     Dosage: 5.000MG QD
     Route: 065
     Dates: start: 20231228, end: 20231228
  17. OXYCODONE HYDROCHLORIDE [Concomitant]
     Active Substance: OXYCODONE HYDROCHLORIDE
     Dosage: 5.000MG QD
     Route: 065
     Dates: start: 20231228, end: 20231228
  18. ACETAMINOPHEN [Concomitant]
     Active Substance: ACETAMINOPHEN
     Dosage: 1000.000MG QD
     Route: 065
     Dates: start: 20231228, end: 20231228
  19. ACETAMINOPHEN [Concomitant]
     Active Substance: ACETAMINOPHEN
     Dosage: 1000.000MG QD
     Route: 065
     Dates: start: 20231228, end: 20231228
  20. ACETAMINOPHEN [Concomitant]
     Active Substance: ACETAMINOPHEN
     Indication: Product used for unknown indication
     Dosage: 1000.000MG TIW
     Route: 065
     Dates: start: 20231228
  21. ACETAMINOPHEN [Concomitant]
     Active Substance: ACETAMINOPHEN
     Dosage: 1000.000MG TIW
     Route: 065
     Dates: start: 20231228
  22. POLATUZUMAB VEDOTIN [Concomitant]
     Active Substance: POLATUZUMAB VEDOTIN
     Indication: Diffuse large B-cell lymphoma
     Dosage: ON 18/JAN/2024, HE RECEIVED MOST RECENT DOSE (140 MG) OF POLATUZUMAB VEDOTIN  PRIOR TO AE AND SAE.
     Route: 065
     Dates: start: 20231229
  23. POLATUZUMAB VEDOTIN [Concomitant]
     Active Substance: POLATUZUMAB VEDOTIN
     Dosage: ON 18/JAN/2024, HE RECEIVED MOST RECENT DOSE (140 MG) OF POLATUZUMAB VEDOTIN  PRIOR TO AE AND SAE.
     Route: 065
     Dates: start: 20231229
  24. PREDNISONE [Concomitant]
     Active Substance: PREDNISONE
     Indication: Product used for unknown indication
     Dosage: 50.000MG QD
     Route: 065
     Dates: start: 20231220, end: 20231227
  25. PREDNISONE [Concomitant]
     Active Substance: PREDNISONE
     Dosage: QD
     Route: 065
     Dates: start: 20231220, end: 20240103
  26. RITUXIMAB [Concomitant]
     Active Substance: RITUXIMAB
     Indication: Diffuse large B-cell lymphoma
     Dosage: ON 18/JAN/2024, HE RECEIVED MOST RECENT DOSE (740 MG) OF RITUXIMAB  PRIOR TO AE AND SAE.
     Route: 065
     Dates: start: 20231228
  27. RITUXIMAB [Concomitant]
     Active Substance: RITUXIMAB
     Dosage: ON 18/JAN/2024, HE RECEIVED MOST RECENT DOSE (740 MG) OF RITUXIMAB  PRIOR TO AE AND SAE.
     Route: 065
     Dates: start: 20231228
  28. VALACYCLOVIR HYDROCHLORIDE [Concomitant]
     Active Substance: VALACYCLOVIR HYDROCHLORIDE
     Indication: Product used for unknown indication
     Dosage: 500.000MG QD
     Route: 065
     Dates: start: 20231228
  29. VANCOMYCIN [Concomitant]
     Active Substance: VANCOMYCIN
     Dosage: 1170.000MG QD
     Route: 065
     Dates: start: 20240118, end: 20240118
  30. VANCOMYCIN [Concomitant]
     Active Substance: VANCOMYCIN
     Indication: Product used for unknown indication
     Dosage: 2340 MG, QD
     Route: 065
     Dates: start: 20240119, end: 20240121

REACTIONS (2)
  - Pyrexia [Recovered/Resolved]
  - Tachycardia [Recovered/Resolved]

NARRATIVE: CASE EVENT DATE: 20240118
